FAERS Safety Report 19377783 (Version 3)
Quarter: 2021Q3

REPORT INFORMATION
  Report Type: Spontaneous
  Country: PL (occurrence: PL)
  Receive Date: 20210605
  Receipt Date: 20210806
  Transmission Date: 20211014
  Serious: Yes (Life-Threatening, Hospitalization)
  Sender: FDA-Public Use
  Company Number: PL-ROCHE-2841605

PATIENT
  Sex: Male
  Weight: 35.4 kg

DRUGS (28)
  1. FILGOTINIB [Suspect]
     Active Substance: FILGOTINIB
     Indication: RHEUMATOID ARTHRITIS
     Route: 048
     Dates: start: 20180619, end: 20201227
  2. PULMICORT TURBUHALER [Suspect]
     Active Substance: BUDESONIDE
     Indication: PRODUCT USED FOR UNKNOWN INDICATION
     Dosage: UNKNOWN
     Route: 055
  3. METHOTREXATE. [Concomitant]
     Active Substance: METHOTREXATE
  4. TOCILIZUMAB. [Suspect]
     Active Substance: TOCILIZUMAB
     Indication: PRODUCT USED FOR UNKNOWN INDICATION
     Dosage: UNKNOWN
     Route: 065
  5. NACL [Suspect]
     Active Substance: SODIUM CHLORIDE
     Indication: PRODUCT USED FOR UNKNOWN INDICATION
     Dosage: UNKNOWN
     Route: 065
  6. FILGOTINIB [Suspect]
     Active Substance: FILGOTINIB
     Route: 048
     Dates: start: 20201228, end: 20210421
  7. FILGOTINIB [Suspect]
     Active Substance: FILGOTINIB
     Route: 048
     Dates: start: 20180619, end: 20210421
  8. CLEXANE [Suspect]
     Active Substance: ENOXAPARIN SODIUM
     Route: 058
     Dates: start: 20210501, end: 20210506
  9. XARELTO [Concomitant]
     Active Substance: RIVAROXABAN
     Dates: start: 20210506
  10. VITAMIN K2 [Concomitant]
     Active Substance: MENAQUINONE 6
  11. OXYGEN. [Suspect]
     Active Substance: OXYGEN
     Indication: PRODUCT USED FOR UNKNOWN INDICATION
     Dosage: UNKNOWN
     Route: 065
  12. DEXAVEN [Suspect]
     Active Substance: DEXAMETHASONE
     Indication: PRODUCT USED FOR UNKNOWN INDICATION
     Dosage: UNKNOWN
     Route: 065
  13. BIOTRAKSON [Suspect]
     Active Substance: CEFTRIAXONE SODIUM
     Indication: PRODUCT USED FOR UNKNOWN INDICATION
     Dosage: UNKNOWN
     Route: 065
  14. FEBROFEN [Concomitant]
     Active Substance: KETOPROFEN
  15. FLEGAMINA [Suspect]
     Active Substance: BROMHEXINE HYDROCHLORIDE
     Indication: PRODUCT USED FOR UNKNOWN INDICATION
     Dosage: UNKNOWN
     Route: 065
  16. CO BESPRES [Concomitant]
  17. VITAMIN C [Concomitant]
     Active Substance: ASCORBIC ACID
  18. MAGNE B6 FORTE [Concomitant]
     Active Substance: MAGNESIUM CITRATE\PYRIDOXINE
  19. OXYGEN. [Suspect]
     Active Substance: OXYGEN
     Route: 055
     Dates: start: 20210421, end: 20210514
  20. BIOTRAKSON [Suspect]
     Active Substance: CEFTRIAXONE SODIUM
     Route: 065
     Dates: start: 20210421, end: 20210514
  21. TOCILIZUMAB. [Suspect]
     Active Substance: TOCILIZUMAB
     Route: 065
     Dates: start: 20210421, end: 20210514
  22. PULMICORT TURBUHALER [Suspect]
     Active Substance: BUDESONIDE
     Route: 055
     Dates: start: 20210421, end: 20210514
  23. CLEXANE [Suspect]
     Active Substance: ENOXAPARIN SODIUM
     Indication: PRODUCT USED FOR UNKNOWN INDICATION
     Dosage: UNKNOWN
     Route: 065
  24. CLEXANE [Suspect]
     Active Substance: ENOXAPARIN SODIUM
     Route: 058
     Dates: start: 20210421, end: 20210514
  25. ATROX (POLAND) [Concomitant]
  26. SLOW MAG [Concomitant]
     Active Substance: MAGNESIUM CHLORIDE
  27. NOLPAZA [Concomitant]
     Active Substance: PANTOPRAZOLE SODIUM
  28. ACIDUM FOLICUM [Concomitant]
     Active Substance: FOLIC ACID

REACTIONS (7)
  - COVID-19 [Not Recovered/Not Resolved]
  - Pulmonary embolism [Not Recovered/Not Resolved]
  - COVID-19 pneumonia [Not Recovered/Not Resolved]
  - Off label use [Unknown]
  - Chronic respiratory failure [Not Recovered/Not Resolved]
  - Interstitial lung disease [Unknown]
  - Acute respiratory failure [Not Recovered/Not Resolved]

NARRATIVE: CASE EVENT DATE: 20210411
